FAERS Safety Report 19984831 (Version 3)
Quarter: 2022Q2

REPORT INFORMATION
  Report Type: Spontaneous
  Country: GB (occurrence: GB)
  Receive Date: 20211021
  Receipt Date: 20220525
  Transmission Date: 20220721
  Serious: Yes (Other)
  Sender: FDA-Public Use
  Company Number: GB-ROCHE-2817098

PATIENT
  Age: 61 Year
  Sex: Female

DRUGS (45)
  1. DOCETAXEL [Suspect]
     Active Substance: DOCETAXEL
     Indication: Breast cancer metastatic
     Dosage: 6 CYCLES COMPLETED.
     Route: 042
     Dates: start: 20170508, end: 20170829
  2. CAPECITABINE [Suspect]
     Active Substance: CAPECITABINE
     Indication: Breast cancer metastatic
     Dosage: 1500 MG
     Route: 048
     Dates: start: 20180809, end: 202009
  3. CYCLOPHOSPHAMIDE [Suspect]
     Active Substance: CYCLOPHOSPHAMIDE
     Indication: Breast cancer metastatic
     Dosage: 1000 MG, Q3W
     Route: 042
     Dates: start: 20201019, end: 20201109
  4. CYCLOPHOSPHAMIDE [Suspect]
     Active Substance: CYCLOPHOSPHAMIDE
     Dosage: 900 MG, Q3W
     Route: 042
     Dates: start: 20201130, end: 20210201
  5. EPIRUBICIN [Suspect]
     Active Substance: EPIRUBICIN
     Indication: Breast cancer metastatic
     Dosage: 120 MG, Q3W
     Route: 042
     Dates: start: 20201019, end: 20210201
  6. TRASTUZUMAB [Suspect]
     Active Substance: TRASTUZUMAB
     Indication: Breast cancer metastatic
     Dosage: 6 CYCLES COMPLETED
     Route: 041
     Dates: start: 20170920, end: 20180103
  7. TRASTUZUMAB [Suspect]
     Active Substance: TRASTUZUMAB
     Dosage: 483 MG, Q3W
     Route: 041
     Dates: start: 20170508, end: 20170508
  8. TRASTUZUMAB [Suspect]
     Active Substance: TRASTUZUMAB
     Dosage: 6 CYCLES COMPLETED
     Route: 041
     Dates: start: 20170529, end: 20170829
  9. PERTUZUMAB [Suspect]
     Active Substance: PERTUZUMAB
     Indication: Breast cancer metastatic
     Dosage: PLANED NUMBER OF CYCLES COMPLETED
     Route: 042
     Dates: start: 20170529, end: 20180103
  10. PERTUZUMAB [Suspect]
     Active Substance: PERTUZUMAB
     Dosage: 840 MG, Q3W
     Route: 042
     Dates: start: 20170508, end: 20170508
  11. ADO-TRASTUZUMAB EMTANSINE [Suspect]
     Active Substance: ADO-TRASTUZUMAB EMTANSINE
     Indication: Breast cancer metastatic
     Dosage: 220 MG, Q3W
     Route: 042
     Dates: start: 20180420, end: 20180622
  12. AMITRIPTYLINE [Concomitant]
     Active Substance: AMITRIPTYLINE
     Indication: Depression
     Dosage: 10 MG
     Route: 048
     Dates: start: 2018
  13. AMITRIPTYLINE [Concomitant]
     Active Substance: AMITRIPTYLINE
     Indication: Anxiety
  14. ATORVASTATIN [Concomitant]
     Active Substance: ATORVASTATIN
     Indication: Ejection fraction decreased
     Dosage: 40 MG, QD
     Route: 048
     Dates: start: 2018
  15. BETAHISTINE [Concomitant]
     Active Substance: BETAHISTINE
     Dosage: 16 MG, QD
     Route: 048
     Dates: start: 20200102
  16. CARVEDILOL [Concomitant]
     Active Substance: CARVEDILOL
     Indication: Ejection fraction decreased
     Dosage: 6.25 MG, QD
     Route: 048
     Dates: start: 2018
  17. CLARITHROMYCIN [Concomitant]
     Active Substance: CLARITHROMYCIN
     Dosage: 500 MG
     Route: 048
     Dates: start: 20210705, end: 20210711
  18. AMOXICILLIN\CLAVULANATE POTASSIUM [Concomitant]
     Active Substance: AMOXICILLIN\CLAVULANATE POTASSIUM
     Indication: Pyrexia
     Dosage: 625 MG
     Route: 048
     Dates: start: 20190411, end: 20190417
  19. AMOXICILLIN\CLAVULANATE POTASSIUM [Concomitant]
     Active Substance: AMOXICILLIN\CLAVULANATE POTASSIUM
     Dosage: 625 MG
     Route: 048
     Dates: start: 20210705, end: 20210711
  20. DALTEPARIN [Concomitant]
     Active Substance: DALTEPARIN
     Indication: Musculoskeletal chest pain
     Dosage: 12500 U
     Route: 058
     Dates: start: 20200402, end: 20200402
  21. DALTEPARIN [Concomitant]
     Active Substance: DALTEPARIN
     Indication: Chest pain
  22. DEXAMETHASONE [Concomitant]
     Active Substance: DEXAMETHASONE
     Dosage: 16 MG
     Route: 048
     Dates: start: 20210729
  23. DEXAMETHASONE [Concomitant]
     Active Substance: DEXAMETHASONE
     Dosage: 4 MG, Q3W
     Route: 048
     Dates: start: 20201019, end: 20210201
  24. DEXAMETHASONE SODIUM PHOSPHATE [Concomitant]
     Active Substance: DEXAMETHASONE SODIUM PHOSPHATE
     Dosage: 8 MG, Q3W
     Route: 042
     Dates: start: 20201019, end: 20210201
  25. DOCUSATE SODIUM [Concomitant]
     Active Substance: DOCUSATE SODIUM
     Dosage: 200 MG
     Route: 048
     Dates: start: 20201019, end: 20201025
  26. DOMPERIDONE [Concomitant]
     Active Substance: DOMPERIDONE
     Dosage: TDS FOR 1 WEEK PRN
     Route: 048
     Dates: start: 20201019, end: 20201025
  27. FUROSEMIDE [Concomitant]
     Active Substance: FUROSEMIDE
     Indication: Ejection fraction decreased
     Dosage: 20 MG, QD
     Route: 048
     Dates: start: 2018
  28. LANSOPRAZOLE [Concomitant]
     Active Substance: LANSOPRAZOLE
     Indication: Gastrooesophageal reflux disease
     Dosage: 30 MG, QD
     Route: 048
     Dates: start: 20170905
  29. POLYETHYLENE GLYCOL 3350\POTASSIUM CHLORIDE\SODIUM BICARBONATE\SODIUM [Concomitant]
     Active Substance: POLYETHYLENE GLYCOL 3350\POTASSIUM CHLORIDE\SODIUM BICARBONATE\SODIUM CHLORIDE
     Indication: Constipation
     Dosage: 2 DF, QD
     Route: 048
     Dates: start: 20201014
  30. LISINOPRIL [Concomitant]
     Active Substance: LISINOPRIL
     Indication: Ejection fraction decreased
     Dosage: 20 MG, QD
     Route: 048
     Dates: start: 2018
  31. MIRTAZAPINE [Concomitant]
     Active Substance: MIRTAZAPINE
     Indication: Insomnia
     Dosage: 15 MG
     Route: 048
  32. MORPHINE SULFATE [Concomitant]
     Active Substance: MORPHINE SULFATE
     Indication: Analgesic therapy
     Dosage: 40 MG, QD
     Route: 048
     Dates: start: 20210616
  33. MORPHINE SULFATE [Concomitant]
     Active Substance: MORPHINE SULFATE
     Dosage: 30 MG
     Route: 048
     Dates: end: 20210615
  34. OMEPRAZOLE [Concomitant]
     Active Substance: OMEPRAZOLE
     Indication: Dyspepsia
     Dosage: 20 MG, QD
     Route: 048
  35. ONDANSETRON [Concomitant]
     Active Substance: ONDANSETRON
     Dosage: 8 MG, Q3W
     Route: 048
     Dates: start: 20201019, end: 20210201
  36. ORAMORPH SR SUSTAINED RELEASE [Concomitant]
     Active Substance: MORPHINE SULFATE
     Indication: Vertigo
     Dosage: 10 MG
     Route: 048
  37. ORAMORPH SR SUSTAINED RELEASE [Concomitant]
     Active Substance: MORPHINE SULFATE
     Dosage: UNK
     Route: 048
  38. ACETAMINOPHEN [Concomitant]
     Active Substance: ACETAMINOPHEN
     Indication: Vertigo
     Dosage: UNK
     Route: 048
  39. SENNA LEAF [Concomitant]
     Active Substance: SENNA LEAF
     Dosage: 15 MG, QD
     Route: 048
     Dates: start: 20201014
  40. ZOLEDRONIC ACID [Concomitant]
     Active Substance: ZOLEDRONIC ACID
     Dosage: 4 MG
     Route: 042
     Dates: start: 20201109
  41. MORPHINE SULFATE [Concomitant]
     Active Substance: MORPHINE SULFATE
     Indication: Analgesic therapy
     Dosage: 30 MG, QD
     Route: 048
     Dates: end: 20210615
  42. MORPHINE SULFATE [Concomitant]
     Active Substance: MORPHINE SULFATE
     Dosage: 40 MG
     Route: 048
     Dates: start: 20210616
  43. SENNA [Concomitant]
     Active Substance: SENNA LEAF\SENNOSIDES\SENNOSIDES A AND B
  44. CODEINE PHOSPHATE [Concomitant]
     Active Substance: CODEINE PHOSPHATE
     Dosage: UNK
     Dates: start: 20200710, end: 20200820
  45. LOPERAMIDE HYDROCHLORIDE [Concomitant]
     Active Substance: LOPERAMIDE HYDROCHLORIDE
     Indication: Diarrhoea
     Dosage: 2 MG
     Route: 048
     Dates: start: 20180809, end: 20190828

REACTIONS (13)
  - Dyspnoea [Recovered/Resolved]
  - Headache [Not Recovered/Not Resolved]
  - Ascites [Recovered/Resolved with Sequelae]
  - Nausea [Recovered/Resolved]
  - Pleuritic pain [Recovered/Resolved]
  - Toothache [Not Recovered/Not Resolved]
  - Abdominal distension [Recovered/Resolved with Sequelae]
  - Gastrooesophageal reflux disease [Recovering/Resolving]
  - Visual impairment [Recovered/Resolved]
  - Abdominal distension [Not Recovered/Not Resolved]
  - Pain in jaw [Not Recovered/Not Resolved]
  - Pyrexia [Recovered/Resolved]
  - Nausea [Recovered/Resolved]

NARRATIVE: CASE EVENT DATE: 20210101
